FAERS Safety Report 13268845 (Version 1)
Quarter: 2017Q1

REPORT INFORMATION
  Report Type: Spontaneous
  Country: PL (occurrence: PL)
  Receive Date: 20170224
  Receipt Date: 20170224
  Transmission Date: 20170428
  Serious: Yes (Hospitalization, Other)
  Sender: FDA-Public Use
  Company Number: PL-SA-2017SA012632

PATIENT
  Age: 23 Year
  Sex: Female

DRUGS (3)
  1. DESOGESTREL [Suspect]
     Active Substance: DESOGESTREL
     Indication: CONTRACEPTION
     Route: 048
  2. HEPARIN [Suspect]
     Active Substance: HEPARIN SODIUM
     Indication: PULMONARY EMBOLISM
     Dosage: INFUSION
     Route: 065
  3. ENOXAPARIN SODIUM. [Suspect]
     Active Substance: ENOXAPARIN SODIUM
     Route: 058

REACTIONS (23)
  - Sinus tachycardia [Recovering/Resolving]
  - Blood pressure decreased [Recovering/Resolving]
  - Pulmonary embolism [Recovering/Resolving]
  - Oxygen saturation decreased [Recovering/Resolving]
  - Pallor [Unknown]
  - Hyperhidrosis [Unknown]
  - Drug ineffective [Unknown]
  - Chest pain [Recovering/Resolving]
  - Tricuspid valve incompetence [Unknown]
  - Pelvic venous thrombosis [Recovering/Resolving]
  - Dyspnoea at rest [Recovering/Resolving]
  - Tachycardia [Recovering/Resolving]
  - Computerised tomogram abnormal [Recovering/Resolving]
  - Hypotension [Unknown]
  - Cardiac ventricular disorder [Recovered/Resolved]
  - Pregnancy on oral contraceptive [Unknown]
  - Shock [Unknown]
  - Right ventricular failure [Recovered/Resolved]
  - Exposure during pregnancy [Unknown]
  - C-reactive protein increased [Recovering/Resolving]
  - Tachypnoea [Recovering/Resolving]
  - Fibrin D dimer increased [Recovering/Resolving]
  - Pulmonary arterial pressure increased [Recovering/Resolving]
